FAERS Safety Report 5688218-1 (Version None)
Quarter: 2008Q1

REPORT INFORMATION
  Report Type: 
  Country: None (occurrence: None)
  Receive Date: 20080327
  Receipt Date: 20080313
  Transmission Date: 20080703
  Serious: Yes (Other)
  Sender: FDA-Public Use
  Company Number: ENTC2008-0082

PATIENT
  Age: 61 Year
  Sex: Male

DRUGS (6)
  1. STALEVO 100 [Suspect]
     Indication: PARKINSON'S DISEASE
     Dosage: 100/25/200MG FOUR TIMES PER 1 DAYS 2 DF
     Dates: start: 20050111, end: 20071201
  2. SIFROL [Suspect]
     Indication: PARKINSON'S DISEASE
     Dosage: 0,125MG
     Dates: start: 20020806, end: 20071201
  3. SINEMET CR [Suspect]
     Indication: PARKINSON'S DISEASE
     Dosage: 200/50MG 4 TIMES PER 1 DAYS 1 DF
     Dates: start: 20030728, end: 20071009
  4. SYMMETREL [Concomitant]
  5. COMTAN [Concomitant]
  6. CARBAMAZEPINE ACTAVIS RETARD [Concomitant]

REACTIONS (1)
  - PATHOLOGICAL GAMBLING [None]
